FAERS Safety Report 15847241 (Version 1)
Quarter: 2019Q1

REPORT INFORMATION
  Report Type: Spontaneous
  Country: FR (occurrence: FR)
  Receive Date: 20190121
  Receipt Date: 20190121
  Transmission Date: 20190417
  Serious: Yes (Other)
  Sender: FDA-Public Use
  Company Number: FR-VELOXIS PHARMACEUTICALS, INC.-2018VELFR1342

PATIENT
  Age: 62 Year
  Sex: Female

DRUGS (5)
  1. POSACONAZOLE [Suspect]
     Active Substance: POSACONAZOLE
     Indication: TRICHOPHYTOSIS
  2. LEFLUNOMIDE. [Suspect]
     Active Substance: LEFLUNOMIDE
     Indication: IMMUNOSUPPRESSANT DRUG THERAPY
     Route: 065
  3. ENVARSUS XR [Suspect]
     Active Substance: TACROLIMUS
     Indication: RENAL TRANSPLANT
     Route: 065
  4. CORTICOSTEROIDS [Suspect]
     Active Substance: CORTICOSTEROID NOS
     Indication: IMMUNOSUPPRESSANT DRUG THERAPY
     Route: 065
  5. POSACONAZOLE [Suspect]
     Active Substance: POSACONAZOLE
     Indication: DERMATOPHYTOSIS
     Route: 065

REACTIONS (12)
  - Pseudomonas infection [Unknown]
  - Thrombocytopenia [Unknown]
  - Neuropathy peripheral [Unknown]
  - Cytomegalovirus infection [Unknown]
  - Trichophytosis [Recovered/Resolved]
  - Cell death [Unknown]
  - Polyomavirus-associated nephropathy [Unknown]
  - Cholestasis [Unknown]
  - Dermatophytosis [Recovered/Resolved]
  - Neutropenia [Unknown]
  - Pneumonia [Unknown]
  - Drug interaction [Unknown]
